FAERS Safety Report 10004640 (Version 2)
Quarter: 2014Q2

REPORT INFORMATION
  Report Type: Spontaneous
  Country: US (occurrence: US)
  Receive Date: 20140312
  Receipt Date: 20140611
  Transmission Date: 20141212
  Serious: No
  Sender: FDA-Public Use
  Company Number: US-INCYTE CORPORATION-2014IN000386

PATIENT
  Age: 76 Year
  Sex: Female

DRUGS (16)
  1. JAKAFI [Suspect]
     Indication: MYELOFIBROSIS
     Dosage: 5 MG, BID
     Route: 048
     Dates: start: 20140120
  2. ACETAMINOPHEN [Concomitant]
     Dosage: 500 MG, PRN
     Route: 048
  3. ALPRAZOLAM [Concomitant]
     Dosage: 2 MG, TID
     Route: 048
  4. ASPIRIN [Concomitant]
     Dosage: 81 MG, QD
     Route: 048
  5. DARBEPOETIN ALFA [Concomitant]
     Dosage: INJECTED AS NEEDED
  6. ERGOCALCIFEROL [Concomitant]
     Dosage: 1 CAPSULE QD
     Route: 048
  7. FERROUS SULFATE [Concomitant]
     Dosage: 1 CAPSULE QD
     Route: 048
  8. FLUTICASONE [Concomitant]
     Dosage: 50 MCG, PRN
     Route: 055
  9. FOLIC ACID W/B6 W/B12 [Concomitant]
     Dosage: 1 TABLET QD
     Route: 048
  10. IPRATROPIUM [Concomitant]
     Dosage: 1 INHALATION QID PRN
  11. METOPROLOL SUCCINATE [Concomitant]
     Dosage: 100 MG, QD
     Route: 048
  12. OXYCODONE [Concomitant]
     Dosage: 5 MG, PRN
     Route: 048
  13. PRAVASTATIN [Concomitant]
     Dosage: 40 MG, QD
     Route: 048
  14. PROAIR HFA [Concomitant]
     Dosage: 90 MCG, PRN
     Route: 055
  15. SERTRALINE [Concomitant]
     Dosage: 100 MG, QD
     Route: 048
  16. LEVOTHYROXINE [Concomitant]
     Dosage: 50 MCG, UNK

REACTIONS (4)
  - Hypertension [Unknown]
  - Increased appetite [Unknown]
  - Weight increased [Unknown]
  - Haemoglobin decreased [None]
